FAERS Safety Report 7433551-6 (Version None)
Quarter: 2011Q2

REPORT INFORMATION
  Report Type: 
  Country: None (occurrence: None)
  Receive Date: 20110422
  Receipt Date: 20110310
  Transmission Date: 20111010
  Serious: Yes (Other)
  Sender: FDA-Public Use
  Company Number: PHHY2011NL31276

PATIENT
  Sex: Male

DRUGS (2)
  1. ZOMETA [Suspect]
     Indication: PROSTATE CANCER METASTATIC
     Dosage: 4 MG/5 ML
  2. ZOMETA [Suspect]
     Dosage: 4 MG/5 ML
     Dates: start: 20110310

REACTIONS (1)
  - GENERAL PHYSICAL HEALTH DETERIORATION [None]
